FAERS Safety Report 12351069 (Version 1)
Quarter: 2016Q2

REPORT INFORMATION
  Report Type: Spontaneous
  Country: US (occurrence: None)
  Receive Date: 20160509
  Receipt Date: 20160509
  Transmission Date: 20160815
  Serious: No
  Sender: FDA-Public Use
  Company Number: None

PATIENT
  Age: 60 Year
  Sex: Female

DRUGS (1)
  1. BOTOX [Suspect]
     Active Substance: ONABOTULINUMTOXINA
     Indication: MIGRAINE
     Dosage: 155 UNITS EVERY 3 MONTHS IM
     Route: 030
     Dates: start: 20151118, end: 20160101

REACTIONS (4)
  - Dysstasia [None]
  - Dizziness [None]
  - Nausea [None]
  - Motion sickness [None]

NARRATIVE: CASE EVENT DATE: 20160101
